FAERS Safety Report 25733299 (Version 1)
Quarter: 2025Q3

REPORT INFORMATION
  Report Type: Spontaneous
  Country: US (occurrence: US)
  Receive Date: 20250828
  Receipt Date: 20250828
  Transmission Date: 20251021
  Serious: Yes (Other)
  Sender: SANOFI AVENTIS
  Company Number: US-SANOFI-02632068

PATIENT
  Age: 62 Year
  Sex: Female

DRUGS (4)
  1. DUPIXENT [Suspect]
     Active Substance: DUPILUMAB
     Indication: Steroid therapy
  2. PEMBROLIZUMAB [Suspect]
     Active Substance: PEMBROLIZUMAB
  3. METRONIDAZOLE [Concomitant]
     Active Substance: METRONIDAZOLE
     Route: 048
  4. APREMILAST [Concomitant]
     Active Substance: APREMILAST
     Route: 048

REACTIONS (11)
  - Lichen planus pemphigoides [Unknown]
  - Skin erosion [Unknown]
  - Pain of skin [Unknown]
  - Ulcer [Unknown]
  - Genital ulceration [Unknown]
  - Mouth ulceration [Unknown]
  - Blister [Unknown]
  - Oral mucosa erosion [Unknown]
  - Post inflammatory pigmentation change [Unknown]
  - Rash [Recovered/Resolved]
  - Off label use [Unknown]
